FAERS Safety Report 9664444 (Version 1)
Quarter: 2013Q4

REPORT INFORMATION
  Report Type: Spontaneous
  Country: BR (occurrence: BR)
  Receive Date: 20131101
  Receipt Date: 20131101
  Transmission Date: 20140711
  Serious: Yes (Other)
  Sender: FDA-Public Use
  Company Number: BR-ASTRAZENECA-2013SE80282

PATIENT
  Age: 78 Year
  Sex: Male

DRUGS (2)
  1. BRLINTA [Suspect]
     Indication: MYOCARDIAL ISCHAEMIA
     Dosage: TWO TIMES A DAY
     Route: 048
     Dates: start: 201309, end: 201309
  2. LOSARTAN [Concomitant]
     Indication: HYPERTENSION

REACTIONS (1)
  - Dermatitis atopic [Recovered/Resolved]
